FAERS Safety Report 9183466 (Version 1)
Quarter: 2012Q4

REPORT INFORMATION
  Report Type: 
  Country: CA (occurrence: CA)
  Receive Date: 20121030
  Receipt Date: 20121030
  Transmission Date: 20130627
  Serious: Yes (Other)
  Sender: FDA-Public Use
  Company Number: PHHY2012CA097471

PATIENT
  Age: 63 None
  Sex: Female

DRUGS (2)
  1. ACLASTA [Suspect]
     Indication: OSTEOPOROSIS
     Dates: start: 20100902
  2. ACLASTA [Suspect]
     Dates: start: 20110912

REACTIONS (3)
  - Road traffic accident [Unknown]
  - Musculoskeletal chest pain [Unknown]
  - Tenderness [Unknown]
